FAERS Safety Report 12173880 (Version 1)
Quarter: 2016Q1

REPORT INFORMATION
  Report Type: Spontaneous
  Country: US (occurrence: None)
  Receive Date: 20160311
  Receipt Date: 20160311
  Transmission Date: 20160526
  Serious: No
  Sender: FDA-Public Use
  Company Number: None

PATIENT

DRUGS (1)
  1. FERRO-SEQUELS 65MG ELEMENTAL IRON INTERNATONAL VITAMIN CORPORATION [Suspect]
     Active Substance: DOCUSATE\IRON
     Indication: MINERAL SUPPLEMENTATION

REACTIONS (2)
  - Product formulation issue [None]
  - Product label issue [None]

NARRATIVE: CASE EVENT DATE: 20160310
